FAERS Safety Report 24288353 (Version 2)
Quarter: 2024Q4

REPORT INFORMATION
  Report Type: Report from Study
  Country: US (occurrence: US)
  Receive Date: 20240905
  Receipt Date: 20241122
  Transmission Date: 20250115
  Serious: Yes (Death, Hospitalization, Disabling, Other)
  Sender: ABBVIE
  Company Number: US-ABBVIE-5907809

PATIENT
  Age: 68 Year
  Sex: Female
  Weight: 47.627 kg

DRUGS (5)
  1. SYNTHROID [Suspect]
     Active Substance: LEVOTHYROXINE SODIUM
     Indication: Product used for unknown indication
     Dosage: START DATE TEXT: 40 YEARS AGO
     Route: 048
     Dates: end: 202308
  2. SYNTHROID [Suspect]
     Active Substance: LEVOTHYROXINE SODIUM
     Indication: Product used for unknown indication
     Route: 048
     Dates: start: 20240206
  3. ATORVASTATIN [Concomitant]
     Active Substance: ATORVASTATIN
     Indication: Product used for unknown indication
  4. LEVOTHYROXINE [Suspect]
     Active Substance: LEVOTHYROXINE
     Indication: Hypothyroidism
     Route: 048
     Dates: start: 20240108, end: 20240206
  5. LEVOTHYROXINE [Suspect]
     Active Substance: LEVOTHYROXINE
     Indication: Hypothyroidism
     Route: 048
     Dates: start: 202308, end: 20240102

REACTIONS (35)
  - Multiple organ dysfunction syndrome [Fatal]
  - Feeding disorder [Not Recovered/Not Resolved]
  - Loss of personal independence in daily activities [Not Recovered/Not Resolved]
  - Red blood cell count decreased [Unknown]
  - Pain [Not Recovered/Not Resolved]
  - Respiratory tract congestion [Not Recovered/Not Resolved]
  - Fatigue [Not Recovered/Not Resolved]
  - Hypertension [Fatal]
  - Hemiplegia [Not Recovered/Not Resolved]
  - Haemorrhagic stroke [Not Recovered/Not Resolved]
  - Dyspnoea [Not Recovered/Not Resolved]
  - Nasal congestion [Not Recovered/Not Resolved]
  - White blood cell count increased [Unknown]
  - Blood test abnormal [Unknown]
  - Unevaluable event [Not Recovered/Not Resolved]
  - Hypertension [Not Recovered/Not Resolved]
  - Brain fog [Not Recovered/Not Resolved]
  - Asthenia [Not Recovered/Not Resolved]
  - Ischaemic stroke [Not Recovered/Not Resolved]
  - Oxygen saturation abnormal [Fatal]
  - Constipation [Not Recovered/Not Resolved]
  - Headache [Not Recovered/Not Resolved]
  - Psychotic disorder [Fatal]
  - Polyarteritis nodosa [Fatal]
  - Haemoglobin decreased [Unknown]
  - Dehydration [Not Recovered/Not Resolved]
  - Pulmonary oedema [Not Recovered/Not Resolved]
  - Antineutrophil cytoplasmic antibody positive [Unknown]
  - Pulmonary mass [Unknown]
  - Nasopharyngitis [Not Recovered/Not Resolved]
  - Panic attack [Recovered/Resolved]
  - Gingival bleeding [Not Recovered/Not Resolved]
  - Epistaxis [Unknown]
  - Sinus disorder [Not Recovered/Not Resolved]
  - Malaise [Not Recovered/Not Resolved]

NARRATIVE: CASE EVENT DATE: 20230801
